FAERS Safety Report 8685087 (Version 2)
Quarter: 2012Q4

REPORT INFORMATION
  Report Type: 
  Country: US (occurrence: US)
  Receive Date: 20120726
  Receipt Date: 20121113
  Transmission Date: 20130627
  Serious: No
  Sender: FDA-Public Use
  Company Number: US-ASTRAZENECA-2012SE51490

PATIENT
  Age: 70 Year
  Sex: Female

DRUGS (1)
  1. SYMBICORT PMDI [Suspect]
     Dosage: UNKNOWN
     Route: 055

REACTIONS (4)
  - Dyspnoea [Unknown]
  - Malaise [Unknown]
  - Nervousness [Unknown]
  - Intentional drug misuse [Unknown]
